FAERS Safety Report 23766094 (Version 2)
Quarter: 2024Q2

REPORT INFORMATION
  Report Type: Report from Study
  Country: US (occurrence: US)
  Receive Date: 20240421
  Receipt Date: 20240425
  Transmission Date: 20240716
  Serious: Yes (Other)
  Sender: FDA-Public Use
  Company Number: US-ABBVIE-5727015

PATIENT
  Sex: Female

DRUGS (1)
  1. HUMIRA [Suspect]
     Active Substance: ADALIMUMAB
     Indication: Psoriatic arthropathy
     Route: 058
     Dates: start: 20231112

REACTIONS (8)
  - Foot deformity [Recovering/Resolving]
  - Sinusitis [Recovered/Resolved]
  - Stress [Not Recovered/Not Resolved]
  - Visual impairment [Unknown]
  - Hypertension [Unknown]
  - General physical condition abnormal [Not Recovered/Not Resolved]
  - Limb discomfort [Unknown]
  - Pain in extremity [Unknown]
